FAERS Safety Report 7746960-2 (Version None)
Quarter: 2011Q3

REPORT INFORMATION
  Report Type: 
  Country: None (occurrence: None)
  Receive Date: 20110913
  Receipt Date: 20110901
  Transmission Date: 20111222
  Serious: Yes (Hospitalization)
  Sender: FDA-Public Use
  Company Number: PHFR2011GB00685

PATIENT
  Sex: Male

DRUGS (2)
  1. RISPERIDONE [Concomitant]
  2. CLOZAPINE [Suspect]
     Indication: SCHIZOPHRENIA
     Dosage: UNK
     Route: 048
     Dates: start: 20080709

REACTIONS (4)
  - DEHYDRATION [None]
  - TACHYCARDIA [None]
  - IMPAIRED SELF-CARE [None]
  - SEDATION [None]
